FAERS Safety Report 9418770 (Version 1)
Quarter: 2013Q3

REPORT INFORMATION
  Report Type: Spontaneous
  Country: US (occurrence: US)
  Receive Date: 20130725
  Receipt Date: 20130725
  Transmission Date: 20140515
  Serious: No
  Sender: FDA-Public Use
  Company Number: US-PFIZER INC-2013216285

PATIENT
  Age: 53 Year
  Sex: Female
  Weight: 99.77 kg

DRUGS (9)
  1. ZOLOFT [Suspect]
     Indication: DEPRESSION
     Dosage: 100 MG, 1X/DAY
     Route: 048
     Dates: start: 1999
  2. NORVASC [Concomitant]
     Dosage: 10 MG, UNK
  3. METOPROLOL [Concomitant]
     Dosage: 50 MG, UNK
  4. MELOXICAM [Concomitant]
     Dosage: 7.5 MG, UNK
  5. CYCLOBENZAPRINE [Concomitant]
     Indication: MUSCLE RELAXANT THERAPY
     Dosage: 10 MG, UNK
  6. LISINOPRIL W/HYDROCHLOROTHIAZIDE [Concomitant]
     Dosage: 20/12.5 MG, UNK
  7. COLCRYS [Concomitant]
     Dosage: 0.6 MG, 2X/DAY
  8. DEXILANT [Concomitant]
     Dosage: UNK
  9. METFORMIN [Concomitant]
     Indication: DIABETES MELLITUS
     Dosage: 500 MG, UNK

REACTIONS (1)
  - White blood cell count increased [Unknown]
